FAERS Safety Report 16531877 (Version 1)
Quarter: 2019Q3

REPORT INFORMATION
  Report Type: Spontaneous
  Country: DE (occurrence: DE)
  Receive Date: 20190704
  Receipt Date: 20190704
  Transmission Date: 20191004
  Serious: Yes (Death, Congenital Anomaly, Other)
  Sender: FDA-Public Use
  Company Number: DE-AUROBINDO-AUR-APL-2019-037249

PATIENT

DRUGS (9)
  1. PHENYTOIN. [Suspect]
     Active Substance: PHENYTOIN
     Indication: EPILEPSY
     Dosage: 300 MILLIGRAM
     Route: 064
     Dates: start: 20080922, end: 20090213
  2. ERGENYL CHRONO [Suspect]
     Active Substance: VALPROIC ACID
     Indication: EPILEPSY
     Dosage: 300 MILLIGRAM
     Route: 064
     Dates: start: 20080922, end: 20081231
  3. TAVOR (LORAZEPAM) [Suspect]
     Active Substance: LORAZEPAM
     Indication: SLEEP DISORDER
     Dosage: 1 UNK, AS NEEDED (PRN)
     Route: 064
  4. LUMINAL [Suspect]
     Active Substance: PHENOBARBITAL SODIUM
     Indication: EPILEPSY
     Dosage: 50 MILLIGRAM, ONCE A DAY
     Route: 064
     Dates: start: 20080922, end: 20090213
  5. THYROXIN [Concomitant]
     Active Substance: LEVOTHYROXINE
     Indication: HYPOTHYROIDISM
     Dosage: UNKNOWN DOSE
     Route: 064
  6. LAMOTRIGINE. [Suspect]
     Active Substance: LAMOTRIGINE
     Indication: EPILEPSY
     Dosage: 50-300 MG/DAY NOT EXACTLY KNOWN
     Route: 064
     Dates: start: 20080922, end: 20090206
  7. KEPPRA [Suspect]
     Active Substance: LEVETIRACETAM
     Indication: EPILEPSY
     Dosage: 4000 MILLIGRAM
     Route: 064
     Dates: start: 20080922, end: 20090213
  8. FRISIUM [Suspect]
     Active Substance: CLOBAZAM
     Indication: EPILEPSY
     Dosage: 20 MILLIGRAM
     Route: 064
     Dates: start: 20080922, end: 20090213
  9. VIMPAT [Concomitant]
     Active Substance: LACOSAMIDE
     Indication: EPILEPSY
     Dosage: UNK
     Route: 064
     Dates: end: 20090204

REACTIONS (7)
  - Brain malformation [Not Recovered/Not Resolved]
  - Limb malformation [Not Recovered/Not Resolved]
  - Microcephaly [Not Recovered/Not Resolved]
  - Foetal exposure during pregnancy [Recovered/Resolved]
  - Spina bifida [Not Recovered/Not Resolved]
  - Foetal growth restriction [Fatal]
  - Cleft lip and palate [Not Recovered/Not Resolved]

NARRATIVE: CASE EVENT DATE: 20081006
